FAERS Safety Report 7158136-0 (Version None)
Quarter: 2010Q4

REPORT INFORMATION
  Report Type: 
  Country: None (occurrence: None)
  Receive Date: 20101214
  Receipt Date: 20100430
  Transmission Date: 20110411
  Serious: No
  Sender: FDA-Public Use
  Company Number: US-ASTRAZENECA-2010SE19752

PATIENT
  Sex: Female
  Weight: 56.2 kg

DRUGS (5)
  1. CRESTOR [Suspect]
     Route: 048
  2. DIOVAN [Concomitant]
     Indication: HYPERTENSION
  3. DETROPAN [Concomitant]
     Indication: HYPERTENSION
  4. ACTOS [Concomitant]
     Indication: DIABETES MELLITUS
  5. ESTRODIAL [Concomitant]
     Indication: HORMONE REPLACEMENT THERAPY

REACTIONS (2)
  - DRUG INEFFECTIVE [None]
  - MALAISE [None]
